FAERS Safety Report 5792333-1 (Version None)
Quarter: 2008Q2

REPORT INFORMATION
  Report Type: 
  Country: None (occurrence: None)
  Receive Date: 20080623
  Receipt Date: 20080612
  Transmission Date: 20081010
  Serious: Yes (Other)
  Sender: FDA-Public Use
  Company Number: 2005JP000919

PATIENT
  Age: 12 Year
  Sex: Female
  Weight: 26.7 kg

DRUGS (30)
  1. TACROLIMUS [Suspect]
     Indication: RENAL TRANSPLANT
     Dosage: 4.00 MG, BID, ORAL, 4 MG, UID/QD, ORAL, 2 MG, D, ORAL, 1.5 MG,  BID, ORAL, 2 MG, BID, ORAL,
     Route: 048
     Dates: start: 20020624, end: 20020625
  2. TACROLIMUS [Suspect]
     Indication: RENAL TRANSPLANT
     Dosage: 4.00 MG, BID, ORAL, 4 MG, UID/QD, ORAL, 2 MG, D, ORAL, 1.5 MG,  BID, ORAL, 2 MG, BID, ORAL,
     Route: 048
     Dates: start: 20020806, end: 20020819
  3. TACROLIMUS [Suspect]
     Indication: RENAL TRANSPLANT
     Dosage: 4.00 MG, BID, ORAL, 4 MG, UID/QD, ORAL, 2 MG, D, ORAL, 1.5 MG,  BID, ORAL, 2 MG, BID, ORAL,
     Route: 048
     Dates: start: 20020820, end: 20020821
  4. TACROLIMUS [Suspect]
     Indication: RENAL TRANSPLANT
     Dosage: 4.00 MG, BID, ORAL, 4 MG, UID/QD, ORAL, 2 MG, D, ORAL, 1.5 MG,  BID, ORAL, 2 MG, BID, ORAL,
     Route: 048
     Dates: start: 20020822, end: 20020919
  5. TACROLIMUS [Suspect]
     Indication: RENAL TRANSPLANT
     Dosage: 4.00 MG, BID, ORAL, 4 MG, UID/QD, ORAL, 2 MG, D, ORAL, 1.5 MG,  BID, ORAL, 2 MG, BID, ORAL,
     Route: 048
     Dates: start: 20020920, end: 20021112
  6. PROGRAF [Suspect]
     Indication: RENAL TRANSPLANT
     Dosage: SEE IMAGE
     Route: 041
     Dates: start: 20020226, end: 20020627
  7. PROGRAF [Suspect]
     Indication: RENAL TRANSPLANT
     Dosage: SEE IMAGE
     Route: 041
     Dates: start: 20020628, end: 20020628
  8. PROGRAF [Suspect]
     Indication: RENAL TRANSPLANT
     Dosage: SEE IMAGE
     Route: 041
     Dates: start: 20020629, end: 20020710
  9. PROGRAF [Suspect]
     Indication: RENAL TRANSPLANT
     Dosage: SEE IMAGE
     Route: 041
     Dates: start: 20020711, end: 20020724
  10. PROGRAF [Suspect]
     Indication: RENAL TRANSPLANT
     Dosage: SEE IMAGE
     Route: 041
     Dates: start: 20020725, end: 20020801
  11. PROGRAF [Suspect]
     Indication: RENAL TRANSPLANT
     Dosage: SEE IMAGE
     Route: 041
     Dates: start: 20020802, end: 20020802
  12. PROGRAF [Suspect]
     Indication: RENAL TRANSPLANT
     Dosage: SEE IMAGE
     Route: 041
     Dates: start: 20020803, end: 20020804
  13. PROGRAF [Suspect]
     Indication: RENAL TRANSPLANT
     Dosage: SEE IMAGE
     Route: 041
     Dates: start: 20020805, end: 20020805
  14. METHYLPREDNISOLONE [Suspect]
     Indication: RENAL TRANSPLANT
     Dosage: 400 MG, D, IV NOS, 300 MG, D, IV NOS, 250 MG, D, IV NOS, 200 MG, D, IV NOS, 100 MG, D, IV NOS,
     Route: 042
     Dates: start: 20020627, end: 20020628
  15. METHYLPREDNISOLONE [Suspect]
     Indication: RENAL TRANSPLANT
     Dosage: 400 MG, D, IV NOS, 300 MG, D, IV NOS, 250 MG, D, IV NOS, 200 MG, D, IV NOS, 100 MG, D, IV NOS,
     Route: 042
     Dates: start: 20020629, end: 20020629
  16. METHYLPREDNISOLONE [Suspect]
     Indication: RENAL TRANSPLANT
     Dosage: 400 MG, D, IV NOS, 300 MG, D, IV NOS, 250 MG, D, IV NOS, 200 MG, D, IV NOS, 100 MG, D, IV NOS,
     Route: 042
     Dates: start: 20020630, end: 20020630
  17. METHYLPREDNISOLONE [Suspect]
     Indication: RENAL TRANSPLANT
     Dosage: 400 MG, D, IV NOS, 300 MG, D, IV NOS, 250 MG, D, IV NOS, 200 MG, D, IV NOS, 100 MG, D, IV NOS,
     Route: 042
     Dates: start: 20020701, end: 20020703
  18. METHYLPREDNISOLONE [Suspect]
     Indication: RENAL TRANSPLANT
     Dosage: 400 MG, D, IV NOS, 300 MG, D, IV NOS, 250 MG, D, IV NOS, 200 MG, D, IV NOS, 100 MG, D, IV NOS,
     Route: 042
     Dates: start: 20020704, end: 20020710
  19. METHYLPREDNISOLONE [Suspect]
     Indication: RENAL TRANSPLANT
     Dosage: 400 MG, D, IV NOS, 300 MG, D, IV NOS, 250 MG, D, IV NOS, 200 MG, D, IV NOS, 100 MG, D, IV NOS,
     Route: 042
     Dates: start: 20020725, end: 20020821
  20. METHYLPREDNISOLONE [Suspect]
     Indication: RENAL TRANSPLANT
     Dosage: 20.00 MG, D, ORAL
     Route: 048
     Dates: start: 20020711, end: 20020724
  21. METHYLPREDNISOLONE [Suspect]
     Indication: RENAL TRANSPLANT
     Dosage: 20.00 MG, D, ORAL
     Route: 048
     Dates: start: 20020822
  22. MYCOPHENOLATE MOFETIL [Suspect]
     Indication: RENAL TRANSPLANT
     Dosage: 800.00 MG, D, ORAL, 500 MG, D, ORAL
     Route: 048
     Dates: start: 20020625, end: 20020710
  23. MYCOPHENOLATE MOFETIL [Suspect]
     Indication: RENAL TRANSPLANT
     Dosage: 800.00 MG, D, ORAL, 500 MG, D, ORAL
     Route: 048
     Dates: start: 20020711, end: 20020724
  24. MYCOPHENOLATE MOFETIL [Suspect]
     Indication: RENAL TRANSPLANT
     Dosage: 800.00 MG, D, ORAL, 500 MG, D, ORAL
     Route: 048
     Dates: start: 20020822
  25. SIMULECT [Concomitant]
  26. DENOSINE (GANCICLOVIR) INJECTION [Concomitant]
  27. SULFAMETHOXAZOLE AND TRIMETHOPRIM [Concomitant]
  28. ZOVIRAX [Concomitant]
  29. ERYTHROPOIETIN (ERYTHROPOIETIN) INJECTION [Concomitant]
  30. COMELIAN (DILAZEP DIHYDROCHLORIDE) [Concomitant]

REACTIONS (13)
  - BIOPSY KIDNEY ABNORMAL [None]
  - BLOOD PHOSPHORUS DECREASED [None]
  - CYTOMEGALOVIRUS INFECTION [None]
  - DISEASE RECURRENCE [None]
  - DRUG TOXICITY [None]
  - ESCHERICHIA SEPSIS [None]
  - FOCAL SEGMENTAL GLOMERULOSCLEROSIS [None]
  - HAEMODIALYSIS [None]
  - HYPERLIPIDAEMIA [None]
  - HYPERTENSION [None]
  - HYPERURICAEMIA [None]
  - STAPHYLOCOCCAL INFECTION [None]
  - URINARY ANASTOMOTIC LEAK [None]
